FAERS Safety Report 10742996 (Version 3)
Quarter: 2015Q2

REPORT INFORMATION
  Report Type: Spontaneous
  Country: US (occurrence: US)
  Receive Date: 20150127
  Receipt Date: 20150611
  Transmission Date: 20150821
  Serious: No
  Sender: FDA-Public Use
  Company Number: US-GLAXOSMITHKLINE-US2014GSK048507

PATIENT
  Age: 66 Year
  Sex: Male
  Weight: 88.89 kg

DRUGS (9)
  1. RIVAROXABAN [Concomitant]
     Active Substance: RIVAROXABAN
  2. ZOVIRAX [Concomitant]
     Active Substance: ACYCLOVIR
  3. ONDANSETRON [Concomitant]
     Active Substance: ONDANSETRON
  4. ATORVASTATIN [Concomitant]
     Active Substance: ATORVASTATIN
  5. MEKINIST [Suspect]
     Active Substance: TRAMETINIB DIMETHYL SULFOXIDE
     Dosage: 1 MG, U
     Route: 048
     Dates: start: 20150206
  6. ZOMETA [Concomitant]
     Active Substance: ZOLEDRONIC ACID
  7. MEKINIST [Suspect]
     Active Substance: TRAMETINIB DIMETHYL SULFOXIDE
     Indication: PLASMA CELL MYELOMA
     Dosage: 2 MG, U
     Route: 048
     Dates: start: 20141024, end: 20150205
  8. VORICONAZOL [Concomitant]
  9. FLUCONAZOLE. [Concomitant]
     Active Substance: FLUCONAZOLE

REACTIONS (6)
  - Adverse drug reaction [Unknown]
  - Rash [Unknown]
  - Wound [Recovered/Resolved with Sequelae]
  - Scab [Unknown]
  - Cardiac disorder [Recovered/Resolved]
  - Acne [Recovered/Resolved with Sequelae]

NARRATIVE: CASE EVENT DATE: 201411
